FAERS Safety Report 8842833 (Version 1)
Quarter: 2012Q4

REPORT INFORMATION
  Report Type: 
  Country: US (occurrence: US)
  Receive Date: 20121016
  Receipt Date: 20121016
  Transmission Date: 20130627
  Serious: Yes (Hospitalization, Other)
  Sender: FDA-Public Use
  Company Number: US-ALET-2012-17426

PATIENT
  Age: 28 Year
  Sex: Male

DRUGS (4)
  1. BUSPIRONE HYDROCHLORIDE [Suspect]
     Indication: PRODUCT USED FOR UNKNOWN INDICATION
     Dosage: high dose
     Route: 065
  2. VANCOMYCIN HCL (WATSON LABORATORIES) [Suspect]
     Indication: CULTURE POSITIVE
     Dosage: UNK
     Route: 065
  3. LINEZOLID [Suspect]
     Indication: CULTURE POSITIVE
     Dosage: UNK
     Route: 065
  4. MEPERIDINE [Suspect]
     Indication: PRODUCT USED FOR UNKNOWN INDICATION
     Dosage: one dose
     Route: 065

REACTIONS (4)
  - Serotonin syndrome [Recovering/Resolving]
  - Renal impairment [Unknown]
  - Drug interaction [Not Recovered/Not Resolved]
  - Renal failure acute [None]
